FAERS Safety Report 7346134-3 (Version None)
Quarter: 2011Q1

REPORT INFORMATION
  Report Type: 
  Country: None (occurrence: None)
  Receive Date: 20110311
  Receipt Date: 20110128
  Transmission Date: 20110831
  Serious: Yes (Hospitalization)
  Sender: FDA-Public Use
  Company Number: US-BAYER-2011-020929

PATIENT
  Sex: Female
  Weight: 95 kg

DRUGS (2)
  1. YAZ [Suspect]
     Indication: CONTRACEPTION
     Dosage: UNK
     Dates: start: 20081009, end: 20081130
  2. YAZ [Suspect]
     Indication: MENSTRUATION IRREGULAR
     Dosage: UNK
     Dates: start: 20060101, end: 20080101

REACTIONS (7)
  - ABDOMINAL PAIN [None]
  - CHOLECYSTITIS CHRONIC [None]
  - CHOLECYSTITIS [None]
  - DIARRHOEA [None]
  - CHOLELITHIASIS [None]
  - NAUSEA [None]
  - VOMITING [None]
